FAERS Safety Report 8234237-0 (Version None)
Quarter: 2012Q1

REPORT INFORMATION
  Report Type: 
  Country: None (occurrence: None)
  Receive Date: 20120326
  Receipt Date: 20120316
  Transmission Date: 20120608
  Serious: Yes (Death, Hospitalization)
  Sender: FDA-Public Use
  Company Number: JP-GENZYME-THYM-1002944

PATIENT
  Sex: Male
  Weight: 30 kg

DRUGS (66)
  1. THYMOGLOBULIN [Suspect]
     Indication: GRAFT VERSUS HOST DISEASE IN SKIN
     Dosage: UNK
     Route: 042
     Dates: start: 20110409, end: 20110420
  2. FAMOTIDINE [Concomitant]
     Indication: PROPHYLAXIS
     Dosage: UNK
     Dates: start: 20101019, end: 20110203
  3. HYDROCORTISONE SODIUM SUCCINATE [Concomitant]
     Indication: PREMEDICATION
     Dosage: UNK
     Dates: start: 20101212, end: 20101226
  4. SODIUM BICARBONATE [Concomitant]
     Indication: PROPHYLAXIS
     Dosage: UNK
     Dates: start: 20101019, end: 20101025
  5. HYDROXYZINE HYDROCHLORIDE [Concomitant]
     Dosage: UNK
     Dates: start: 20110122, end: 20110414
  6. CEFTAZIDIME [Concomitant]
     Indication: INFECTION PROPHYLAXIS
     Dosage: UNK
     Dates: start: 20101101, end: 20101105
  7. LORAZEPAM [Concomitant]
     Indication: ANXIETY DISORDER
     Dosage: UNK
     Dates: start: 20101018, end: 20101021
  8. RED BLOOD CELLS [Concomitant]
     Dosage: UNK
     Dates: start: 20110226, end: 20110226
  9. PLATELETS [Concomitant]
     Indication: HODGKIN'S DISEASE
     Dosage: UNK
     Dates: start: 20101026, end: 20101107
  10. RISPERIDONE [Concomitant]
     Indication: ANXIETY DISORDER
     Dosage: UNK
     Dates: start: 20101022
  11. MYCOPHENOLATE MOFETIL [Concomitant]
     Indication: PROPHYLAXIS AGAINST GRAFT VERSUS HOST DISEASE
     Dosage: UNK
     Dates: start: 20101210
  12. THYMOGLOBULIN [Suspect]
     Indication: BONE MARROW CONDITIONING REGIMEN
     Dosage: 38 MG, QD
     Route: 042
     Dates: start: 20101025, end: 20101026
  13. PREDNISOLONE SODIUM SUCCINATE INJ [Concomitant]
     Indication: PROPHYLAXIS AGAINST GRAFT VERSUS HOST DISEASE
     Dosage: UNK
     Dates: start: 20101027
  14. METHOTREXATE [Concomitant]
     Dosage: UNK
     Dates: start: 20101125, end: 20101125
  15. PLATELETS [Concomitant]
     Dosage: UNK
     Dates: start: 20110409
  16. FAMOTIDINE [Concomitant]
     Indication: GASTRITIS PROPHYLAXIS
     Dosage: UNK
     Dates: start: 20110203, end: 20110317
  17. GRANISETRON [Concomitant]
     Indication: PROPHYLAXIS
     Dosage: UNK
     Dates: start: 20101019, end: 20101110
  18. HYDROXYZINE HYDROCHLORIDE [Concomitant]
     Indication: PREMEDICATION
     Dosage: UNK
     Dates: start: 20101025, end: 20101026
  19. MIXED AMINO ACID-CARBOHYDRATE-ELECTROLYTE-VITAMIN COMBINED DRUG [Concomitant]
     Dosage: UNK
     Dates: start: 20101102, end: 20101115
  20. METHOTREXATE [Concomitant]
     Dosage: UNK
     Dates: start: 20101211, end: 20101211
  21. ETHYL ICOSAPENTATE [Concomitant]
     Indication: PROPHYLAXIS
     Dosage: UNK
     Dates: start: 20101018, end: 20110217
  22. RED BLOOD CELLS [Concomitant]
     Indication: BONE MARROW CONDITIONING REGIMEN
     Dosage: UNK
     Dates: start: 20101023, end: 20101023
  23. RED BLOOD CELLS [Concomitant]
     Dosage: UNK
     Dates: start: 20101104, end: 20101104
  24. CLOMIPRAMINE HYDROCHLORIDE [Concomitant]
     Indication: ANXIETY DISORDER
     Dosage: UNK
     Dates: start: 20100217
  25. NIFEDIPINE [Concomitant]
     Indication: PROPHYLAXIS
     Dosage: UNK
     Dates: start: 20110211, end: 20110325
  26. DALTEPARIN SODIUM [Concomitant]
     Indication: PROPHYLAXIS
     Dosage: UNK
     Dates: start: 20101020, end: 20101221
  27. HYDROXYZINE HYDROCHLORIDE [Concomitant]
     Dosage: UNK
     Dates: start: 20110409, end: 20110410
  28. METHYLPREDNISOLONE SODIUM SUCCINATE [Concomitant]
     Dosage: UNK
     Dates: start: 20110419, end: 20110420
  29. TACROLIMUS [Concomitant]
     Indication: PROPHYLAXIS AGAINST GRAFT VERSUS HOST DISEASE
     Dosage: UNK
     Dates: start: 20101027, end: 20101115
  30. MIXED AMINO ACID-CARBOHYDRATE-ELECTROLYTE-VITAMIN COMBINED DRUG [Concomitant]
     Dosage: UNK
     Dates: start: 20101116, end: 20110105
  31. METHOTREXATE [Concomitant]
     Dosage: UNK
     Dates: start: 20101231, end: 20101231
  32. ACETAZOLAMIDE [Concomitant]
     Indication: PROPHYLAXIS
     Dosage: UNK
     Dates: start: 20101019, end: 20101024
  33. ETOPOSIDE [Concomitant]
     Indication: BONE MARROW CONDITIONING REGIMEN
     Dosage: UNK
     Dates: start: 20101022, end: 20101023
  34. MESNA [Concomitant]
     Indication: PROPHYLAXIS
     Dosage: UNK
     Dates: start: 20101023, end: 20101024
  35. CYCLOPHOSPHAMIDE [Concomitant]
     Indication: BONE MARROW CONDITIONING REGIMEN
     Dosage: UNK
     Dates: start: 20101023, end: 20101024
  36. METHOTREXATE [Concomitant]
     Indication: PROPHYLAXIS AGAINST GRAFT VERSUS HOST DISEASE
     Dosage: UNK
     Dates: start: 20101028, end: 20101028
  37. METHOTREXATE [Concomitant]
     Dosage: UNK
     Dates: start: 20101217, end: 20101217
  38. COTRIM [Concomitant]
     Indication: INFECTION PROPHYLAXIS
     Dosage: UNK
     Dates: start: 20101018
  39. URSODIOL [Concomitant]
     Indication: PROPHYLAXIS
     Dosage: UNK
     Dates: start: 20101018, end: 20110217
  40. RED BLOOD CELLS [Concomitant]
     Dosage: UNK
     Dates: start: 20110321, end: 20110321
  41. RED BLOOD CELLS [Concomitant]
     Dosage: UNK
     Dates: start: 20110419, end: 20110419
  42. PREDNISOLONE [Concomitant]
     Indication: PROPHYLAXIS AGAINST GRAFT VERSUS HOST DISEASE
     Dosage: UNK
     Dates: start: 20110311, end: 20110424
  43. LEVOMEPROMAZINE HYDROCHLORIDE [Concomitant]
     Indication: ANXIETY DISORDER
     Dosage: UNK
     Dates: start: 20101022, end: 20101023
  44. HYDROXYZINE HYDROCHLORIDE [Concomitant]
     Dosage: UNK
     Dates: start: 20110419, end: 20110420
  45. MIXED AMINO ACID-CARBOHYDRATE-ELECTROLYTE-VITAMIN COMBINED DRUG [Concomitant]
     Indication: NUTRITIONAL SUPPORT
     Dosage: UNK
     Dates: start: 20101029, end: 20101101
  46. FLUCONAZOLE [Concomitant]
     Indication: INFECTION PROPHYLAXIS
     Dosage: UNK
     Dates: start: 20101018, end: 20101020
  47. RED BLOOD CELLS [Concomitant]
     Indication: HODGKIN'S DISEASE
     Dosage: UNK
     Dates: start: 20101029, end: 20101029
  48. RED BLOOD CELLS [Concomitant]
     Dosage: UNK
     Dates: start: 20110303, end: 20110303
  49. PLATELETS [Concomitant]
     Indication: BONE MARROW CONDITIONING REGIMEN
     Dosage: UNK
     Dates: start: 20110228, end: 20110320
  50. FLUNITRAZEPAM [Concomitant]
     Indication: ANXIETY DISORDER
     Dosage: UNK
     Dates: start: 20101208
  51. THYMOGLOBULIN [Suspect]
     Dosage: UNK
     Dates: start: 20110419, end: 20110420
  52. HYDROCORTISONE SODIUM SUCCINATE [Concomitant]
     Indication: PROPHYLAXIS
     Dosage: UNK
     Dates: start: 20101019, end: 20101110
  53. FUROSEMIDE [Concomitant]
     Indication: PROPHYLAXIS
     Dosage: UNK
     Dates: start: 20101020
  54. METHOTREXATE [Concomitant]
     Dosage: UNK
     Dates: start: 20101030, end: 20101030
  55. METHOTREXATE [Concomitant]
     Dosage: UNK
     Dates: start: 20101102, end: 20101102
  56. METHOTREXATE [Concomitant]
     Dosage: UNK
     Dates: start: 20101224, end: 20101224
  57. LENOGRASTIM [Concomitant]
     Indication: WHITE BLOOD CELL COUNT DECREASED
     Dosage: UNK
     Dates: start: 20101029, end: 20101107
  58. ACYCLOVIR [Concomitant]
     Indication: INFECTION PROPHYLAXIS
     Dosage: UNK
     Dates: start: 20101021, end: 20101223
  59. TOTAL BODY IRRADIATION [Concomitant]
     Indication: BONE MARROW CONDITIONING REGIMEN
     Dosage: UNK
     Dates: start: 20101019, end: 20101021
  60. PIPERACILLIN SODIUM [Concomitant]
     Indication: INFECTION PROPHYLAXIS
     Dosage: UNK
     Dates: start: 20101019, end: 20101101
  61. MICAFUNGIN [Concomitant]
     Indication: INFECTION PROPHYLAXIS
     Dosage: UNK
     Dates: start: 20101019, end: 20110119
  62. METHYLPREDNISOLONE SODIUM SUCCINATE [Concomitant]
     Indication: PREMEDICATION
     Dosage: UNK
     Dates: start: 20101025, end: 20101026
  63. TACROLIMUS [Concomitant]
     Dosage: UNK
     Dates: start: 20101115
  64. CEFOZOPRAN HYDROCHLORIDE [Concomitant]
     Indication: INFECTION PROPHYLAXIS
     Dosage: UNK
     Dates: start: 20110415
  65. MEROPENEM [Concomitant]
     Indication: INFECTION PROPHYLAXIS
     Dosage: UNK
     Dates: start: 20110215, end: 20110302
  66. VANCOMYCIN HYDROCHLORIDE [Concomitant]
     Indication: INFECTION PROPHYLAXIS
     Dosage: UNK
     Dates: start: 20101018, end: 20101112

REACTIONS (18)
  - NEOPLASM PROGRESSION [None]
  - GRAFT VERSUS HOST DISEASE IN SKIN [None]
  - HEPATIC FUNCTION ABNORMAL [None]
  - GRAFT VERSUS HOST DISEASE IN INTESTINE [None]
  - BRONCHOPULMONARY ASPERGILLOSIS [None]
  - EPSTEIN-BARR VIRAEMIA [None]
  - TREMOR [None]
  - PLEURAL EFFUSION [None]
  - DIARRHOEA [None]
  - HYPERTENSION [None]
  - STOMATITIS [None]
  - ABDOMINAL PAIN [None]
  - DEATH [None]
  - CYTOMEGALOVIRUS VIRAEMIA [None]
  - HUMAN HERPESVIRUS 6 INFECTION [None]
  - CYSTITIS HAEMORRHAGIC [None]
  - ENGRAFTMENT SYNDROME [None]
  - PYREXIA [None]
